FAERS Safety Report 7645436-0 (Version None)
Quarter: 2011Q3

REPORT INFORMATION
  Report Type: 
  Country: None (occurrence: None)
  Receive Date: 20110729
  Receipt Date: 20110725
  Transmission Date: 20111222
  Serious: Yes (Other)
  Sender: FDA-Public Use
  Company Number: CHPA2011CA09925

PATIENT
  Sex: Female

DRUGS (1)
  1. TRANSDERM VOYAGER [Suspect]
     Indication: MOTION SICKNESS
     Dosage: 1 DF, UNK
     Route: 062
     Dates: start: 20110722, end: 20110724

REACTIONS (6)
  - VISION BLURRED [None]
  - AMNESIA [None]
  - TREMOR [None]
  - DRY MOUTH [None]
  - SALIVA ALTERED [None]
  - RESTLESS LEGS SYNDROME [None]
